FAERS Safety Report 16475283 (Version 1)
Quarter: 2019Q2

REPORT INFORMATION
  Report Type: Spontaneous
  Country: DK (occurrence: DK)
  Receive Date: 20190625
  Receipt Date: 20190625
  Transmission Date: 20190711
  Serious: Yes (Other)
  Sender: FDA-Public Use
  Company Number: PHHY2019DK141573

PATIENT
  Age: 92 Year
  Sex: Male

DRUGS (1)
  1. CORDAN (AMIODARONE HYDROCHLORIDE) [Suspect]
     Active Substance: AMIODARONE HYDROCHLORIDE
     Indication: ATRIAL FIBRILLATION
     Dosage: 200 MG, QD
     Route: 048
     Dates: start: 20140828, end: 20181206

REACTIONS (5)
  - Interstitial lung disease [Unknown]
  - Pneumothorax [Unknown]
  - Pneumonia [Unknown]
  - Total lung capacity decreased [Unknown]
  - Dyspnoea [Unknown]
